FAERS Safety Report 4307566-0 (Version None)
Quarter: 2004Q1

REPORT INFORMATION
  Report Type: 
  Country: None (occurrence: None)
  Receive Date: 20040226
  Receipt Date: 20040212
  Transmission Date: 20041129
  Serious: Yes (Other)
  Sender: FDA-Public Use
  Company Number: 2003-DE-00383UP

PATIENT
  Age: 65 Year
  Sex: Female

DRUGS (5)
  1. MIRAPEX [Suspect]
     Indication: PARKINSON'S DISEASE
     Dosage: 3.75 MG (1.25 MG,3 IN 1 D), PO; 4.5 MG (1.5 MG,3 IN 1 D),PO
     Route: 048
     Dates: start: 20020814
  2. SOMAC (TA) [Suspect]
     Indication: GASTROINTESTINAL DISORDER
     Dosage: 40 MG (40 MG), PO
     Route: 048
     Dates: start: 20021219
  3. STARNOC (NR) [Concomitant]
  4. RANITIDINE (RANITIDINE) (NR) [Concomitant]
  5. ESTROGEL (ESTRADIOL) (NR) [Concomitant]

REACTIONS (1)
  - ALOPECIA [None]
